FAERS Safety Report 16930524 (Version 1)
Quarter: 2019Q4

REPORT INFORMATION
  Report Type: Spontaneous
  Country: GB (occurrence: GB)
  Receive Date: 20191017
  Receipt Date: 20191017
  Transmission Date: 20200122
  Serious: Yes (Other)
  Sender: FDA-Public Use
  Company Number: GB-MYLANLABS-2019M1097447

PATIENT
  Age: 21 Year
  Sex: Female
  Weight: 76.2 kg

DRUGS (3)
  1. AZATHIOPRINE. [Suspect]
     Active Substance: AZATHIOPRINE
     Indication: CROHN^S DISEASE
     Dosage: 125 MILLIGRAM
     Route: 048
     Dates: start: 20180110
  2. SERTRALINE [Concomitant]
     Active Substance: SERTRALINE HYDROCHLORIDE
     Dosage: UNK
  3. MICROGYNON                         /00022701/ [Suspect]
     Active Substance: ETHINYL ESTRADIOL\LEVONORGESTREL ACETATE
     Indication: CONTRACEPTION
     Dosage: UNK
     Route: 048
     Dates: start: 20170807, end: 20190723

REACTIONS (2)
  - Fatigue [Not Recovered/Not Resolved]
  - Abnormal weight gain [Not Recovered/Not Resolved]
